FAERS Safety Report 8639853 (Version 2)
Quarter: 2014Q1

REPORT INFORMATION
  Report Type: Spontaneous
  Country: US (occurrence: None)
  Receive Date: 20120323
  Receipt Date: 20130305
  Transmission Date: 20141002
  Serious: Yes (Disabling, Other)
  Sender: FDA-Public Use
  Company Number: 163-21880-11102551

PATIENT
  Age: 54 Year
  Sex: Female

DRUGS (4)
  1. REVLIMID [Suspect]
     Indication: LYMPHATIC DISORDER
     Dosage: 1 IN 1 D?
     Route: 048
     Dates: start: 20110923
  2. REVLIMID [Suspect]
     Indication: MYELODYSPLASTIC SYNDROME
     Dosage: 1 IN 1 D?
     Route: 048
     Dates: start: 20110923
  3. EXJADE (DEFERASIROX)(500 MILLIGRAM, CAPSULES) [Concomitant]
  4. PACKED RED BLOOD CELL COUNT (RED BLOOD CELLS)(UNKNOWN) [Concomitant]

REACTIONS (13)
  - Anaemia [None]
  - Herpes zoster [None]
  - Pruritus [None]
  - Muscle spasms [None]
  - Rash [None]
  - Fatigue [None]
  - Malaise [None]
  - Constipation [None]
  - Diarrhoea [None]
  - Abdominal pain [None]
  - Purpura [None]
  - Platelet count decreased [None]
  - Tooth infection [None]
